FAERS Safety Report 17972388 (Version 1)
Quarter: 2020Q3

REPORT INFORMATION
  Report Type: Spontaneous
  Country: US (occurrence: US)
  Receive Date: 20200701
  Receipt Date: 20200701
  Transmission Date: 20201103
  Serious: No
  Sender: FDA-Public Use
  Company Number: None

PATIENT
  Age: 75 Year
  Sex: Female
  Weight: 67.13 kg

DRUGS (4)
  1. MULTIVITAMIN [Concomitant]
     Active Substance: VITAMINS
  2. NATURAL PROGESTERONE CREAM [Concomitant]
  3. NP THYROID [Suspect]
     Active Substance: LEVOTHYROXINE\LIOTHYRONINE
     Indication: HYPOTHYROIDISM
     Dosage: ?          QUANTITY:1 PILL;?
     Route: 048
     Dates: start: 20200506, end: 20200603
  4. VITAMIN D3 [Concomitant]
     Active Substance: CHOLECALCIFEROL

REACTIONS (8)
  - Recalled product administered [None]
  - Constipation [None]
  - Feeling abnormal [None]
  - Blood glucose decreased [None]
  - Heart rate irregular [None]
  - Dyspepsia [None]
  - Depression [None]
  - Back pain [None]

NARRATIVE: CASE EVENT DATE: 20200601
